FAERS Safety Report 6711550-7 (Version None)
Quarter: 2010Q2

REPORT INFORMATION
  Report Type: 
  Country: None (occurrence: None)
  Receive Date: 20100505
  Receipt Date: 20100422
  Transmission Date: 20101027
  Serious: Yes (Hospitalization)
  Sender: FDA-Public Use
  Company Number: PHHY2010CA04976

PATIENT
  Sex: Male

DRUGS (10)
  1. EXJADE [Suspect]
     Indication: HEREDITARY STOMATOCYTOSIS
     Dosage: 3500 MG, QD
     Route: 048
  2. FOLIC ACID [Concomitant]
     Dosage: 10 MG, QD
     Route: 048
  3. FLUOXETINE [Concomitant]
     Dosage: 40 MG, QD
  4. COUMADIN [Concomitant]
     Dosage: 7 MG, QD
  5. DILANDID [Concomitant]
     Dosage: 8-16 MG PRN
  6. KADIAN [Concomitant]
     Dosage: 200 MG, QD
     Route: 048
  7. PROZAC [Concomitant]
     Dosage: 40 MG
     Route: 048
  8. LORAZEPAM [Concomitant]
     Dosage: PRN
     Route: 048
  9. TESTOSTERONE [Concomitant]
     Dosage: 200 ML EVERY 02 WEEKS
     Route: 030
  10. TINZAPARIN [Concomitant]
     Dosage: 1.8 ML
     Route: 058

REACTIONS (9)
  - DIARRHOEA [None]
  - DYSPNOEA [None]
  - GAIT DISTURBANCE [None]
  - INFLUENZA LIKE ILLNESS [None]
  - LOSS OF CONTROL OF LEGS [None]
  - PAIN [None]
  - PERIPHERAL VASCULAR DISORDER [None]
  - PULMONARY INFARCTION [None]
  - VOMITING [None]
